FAERS Safety Report 7770776-4 (Version None)
Quarter: 2011Q3

REPORT INFORMATION
  Report Type: 
  Country: None (occurrence: None)
  Receive Date: 20110922
  Receipt Date: 20110629
  Transmission Date: 20111222
  Serious: No
  Sender: FDA-Public Use
  Company Number: US-ASTRAZENECA-2011SE38958

PATIENT
  Age: 58 Year
  Sex: Female
  Weight: 99.8 kg

DRUGS (7)
  1. SEROQUEL [Suspect]
     Indication: BORDERLINE PERSONALITY DISORDER
     Route: 048
  2. EFFEXOR XR [Concomitant]
     Indication: DEPRESSION
  3. TRI-SPRINTEC [Concomitant]
     Indication: ORAL CONTRACEPTION
  4. SEROQUEL [Suspect]
     Indication: MOOD SWINGS
     Route: 048
  5. SEROQUEL [Suspect]
     Indication: SLEEP DISORDER
     Route: 048
  6. ADIPEX [Concomitant]
     Indication: MEDICAL DIET
  7. VICODIN [Concomitant]
     Indication: JOINT INJURY

REACTIONS (3)
  - INSOMNIA [None]
  - DRUG DOSE OMISSION [None]
  - OFF LABEL USE [None]
